FAERS Safety Report 24087241 (Version 1)
Quarter: 2024Q3

REPORT INFORMATION
  Report Type: Other
  Country: LK (occurrence: LK)
  Receive Date: 20240714
  Receipt Date: 20240714
  Transmission Date: 20241016
  Serious: Yes (Hospitalization, Other)
  Sender: DEXCEL
  Company Number: LK-DEXPHARM-2024-2191

PATIENT
  Age: 67 Year
  Sex: Male

DRUGS (2)
  1. OMEPRAZOLE [Suspect]
     Active Substance: OMEPRAZOLE
     Indication: Dyspepsia
  2. HERBALS [Suspect]
     Active Substance: HERBALS

REACTIONS (1)
  - Insulin autoimmune syndrome [Recovered/Resolved]
